FAERS Safety Report 7200867-8 (Version None)
Quarter: 2010Q4

REPORT INFORMATION
  Report Type: 
  Country: None (occurrence: None)
  Receive Date: 20101228
  Receipt Date: 20101222
  Transmission Date: 20110411
  Serious: Yes (Hospitalization, Other)
  Sender: FDA-Public Use
  Company Number: BE-ABBOTT-10P-013-0689590-00

PATIENT
  Sex: Male
  Weight: 95 kg

DRUGS (2)
  1. HUMIRA [Suspect]
     Indication: PSORIATIC ARTHROPATHY
     Route: 058
     Dates: start: 20080219, end: 20101123
  2. HUMIRA [Suspect]
     Indication: PSORIASIS

REACTIONS (4)
  - ANGINA PECTORIS [None]
  - ARTERIOSCLEROSIS [None]
  - CORONARY ARTERY STENOSIS [None]
  - MALAISE [None]
